FAERS Safety Report 5662290-7 (Version None)
Quarter: 2008Q1

REPORT INFORMATION
  Report Type: 
  Country: None (occurrence: None)
  Receive Date: 20080312
  Receipt Date: 20080307
  Transmission Date: 20080703
  Serious: Yes (Hospitalization)
  Sender: FDA-Public Use
  Company Number: CH-MERCK-0803CHE00004

PATIENT
  Age: 51 Year
  Sex: Female

DRUGS (4)
  1. FOSAMAX PLUS D [Suspect]
     Indication: OSTEOPOROSIS
     Route: 048
     Dates: start: 20070101, end: 20071230
  2. INSULIN [Concomitant]
     Indication: TYPE 1 DIABETES MELLITUS
     Route: 058
  3. VITAMIN B COMPLEX [Concomitant]
     Route: 048
  4. THIAMINE HYDROCHLORIDE [Concomitant]
     Route: 048

REACTIONS (1)
  - HEPATITIS [None]
